FAERS Safety Report 13675942 (Version 1)
Quarter: 2017Q2

REPORT INFORMATION
  Report Type: Spontaneous
  Country: US (occurrence: US)
  Receive Date: 20170620
  Receipt Date: 20170620
  Transmission Date: 20170830
  Serious: Yes (Disabling)
  Sender: FDA-Public Use
  Company Number: None

PATIENT
  Age: 51 Year
  Sex: Female
  Weight: 47.25 kg

DRUGS (15)
  1. ARMOUR THYROID [Concomitant]
     Active Substance: THYROID, PORCINE
  2. MELATONIN [Concomitant]
     Active Substance: MELATONIN
  3. METHYL B12 [Concomitant]
  4. COD LIVER OIL [Concomitant]
     Active Substance: COD LIVER OIL
  5. VITAMIN D3 [Concomitant]
     Active Substance: CHOLECALCIFEROL
  6. CLONAZEPAM. [Suspect]
     Active Substance: CLONAZEPAM
     Indication: POST-TRAUMATIC STRESS DISORDER
     Dosage: ?          QUANTITY:1 TABLET(S);?
     Route: 048
     Dates: start: 20090304, end: 20170304
  7. BIOIDENTICAL HORMONES [Concomitant]
  8. S-ACETYL GLUTATHIONE [Concomitant]
  9. CLONAZEPAM. [Suspect]
     Active Substance: CLONAZEPAM
     Indication: ANXIETY
     Dosage: ?          QUANTITY:1 TABLET(S);?
     Route: 048
     Dates: start: 20090304, end: 20170304
  10. OPTIMAG NEURO [Concomitant]
  11. OLIVE LEAF EXTRACT [Concomitant]
  12. PRIVIGEN [Concomitant]
     Active Substance: HUMAN IMMUNOGLOBULIN G
  13. TRAZODONE [Concomitant]
     Active Substance: TRAZODONE HYDROCHLORIDE
  14. CATAPLEX G [Concomitant]
  15. IOSOL IODINE [Concomitant]

REACTIONS (20)
  - Hiatus hernia [None]
  - Nasal congestion [None]
  - Vomiting [None]
  - Muscle twitching [None]
  - Productive cough [None]
  - Thinking abnormal [None]
  - Dyspnoea [None]
  - Paraesthesia [None]
  - Motion sickness [None]
  - Night sweats [None]
  - Hyperacusis [None]
  - Pollakiuria [None]
  - Weight decreased [None]
  - Dysphagia [None]
  - Headache [None]
  - Tinnitus [None]
  - Insomnia [None]
  - Dizziness [None]
  - Cognitive disorder [None]
  - Memory impairment [None]

NARRATIVE: CASE EVENT DATE: 20170304
